FAERS Safety Report 5528312-9 (Version None)
Quarter: 2007Q4

REPORT INFORMATION
  Report Type: 
  Country: None (occurrence: None)
  Receive Date: 20071128
  Receipt Date: 20071119
  Transmission Date: 20080405
  Serious: Yes (Death, Other)
  Sender: FDA-Public Use
  Company Number: US-PFIZER INC-2007098056

PATIENT
  Sex: Male

DRUGS (2)
  1. CELEBREX [Suspect]
     Route: 048
     Dates: start: 20031101, end: 20041031
  2. VIOXX [Suspect]
     Route: 048
     Dates: start: 20020528, end: 20030131

REACTIONS (2)
  - DEATH [None]
  - MYOCARDIAL INFARCTION [None]
